FAERS Safety Report 6543227-5 (Version None)
Quarter: 2010Q1

REPORT INFORMATION
  Report Type: 
  Country: None (occurrence: None)
  Receive Date: 20100106
  Receipt Date: 20091009
  Transmission Date: 20100710
  Serious: No
  Sender: FDA-Public Use
  Company Number: 2009-00655

PATIENT
  Age: 49 Year
  Sex: Male
  Weight: 90.7194 kg

DRUGS (1)
  1. COLD REMEDY NASAL GEL [Suspect]
     Dosage: QID
     Dates: start: 20090201

REACTIONS (1)
  - ANOSMIA [None]
